FAERS Safety Report 21416983 (Version 1)
Quarter: 2022Q4

REPORT INFORMATION
  Report Type: Other
  Country: US (occurrence: None)
  Receive Date: 20221006
  Receipt Date: 20221006
  Transmission Date: 20230113
  Serious: Yes (Hospitalization, Other)
  Sender: FDA-Public Use
  Company Number: US-ROCHE-2766758

PATIENT
  Sex: Female
  Weight: 70.824 kg

DRUGS (29)
  1. OCREVUS [Suspect]
     Active Substance: OCRELIZUMAB
     Indication: Secondary progressive multiple sclerosis
     Dosage: NEXT INFUSION GIVEN ON 21/AUG/2021
     Route: 042
     Dates: start: 20200806
  2. CELLCEPT [Suspect]
     Active Substance: MYCOPHENOLATE MOFETIL
     Indication: Autoimmune disorder
     Dosage: TWO 500 MG TABLETS TWICE A DAY
     Route: 048
     Dates: start: 2005, end: 2020
  3. PLAVIX [Concomitant]
     Active Substance: CLOPIDOGREL BISULFATE
     Indication: Factor V deficiency
     Dosage: STARTED 10 OR MORE YEARS AGO TAKES AT BEDTIME
     Route: 048
  4. PLAVIX [Concomitant]
     Active Substance: CLOPIDOGREL BISULFATE
     Indication: Embolic stroke
  5. ASPIRIN [Concomitant]
     Active Substance: ASPIRIN
     Indication: Factor V deficiency
     Dosage: STARTED 10 OR MORE YEARS AGO TAKES AT BEDTIME
     Route: 048
  6. ASPIRIN [Concomitant]
     Active Substance: ASPIRIN
     Indication: Embolic stroke
  7. PROZAC [Concomitant]
     Active Substance: FLUOXETINE HYDROCHLORIDE
     Indication: Affect lability
     Dosage: STARTED MAYBE 3 YEARS AGO
     Route: 048
  8. ACIPHEX [Concomitant]
     Active Substance: RABEPRAZOLE SODIUM
     Indication: Gastrooesophageal reflux disease
     Dosage: STARTED ABOUT 15 YEARS AGO
     Route: 048
  9. ACIPHEX [Concomitant]
     Active Substance: RABEPRAZOLE SODIUM
     Indication: Impaired gastric emptying
  10. VESICARE [Concomitant]
     Active Substance: SOLIFENACIN SUCCINATE
     Indication: Urinary incontinence
     Dosage: STARTED ABOUT 1 YEAR AGO
     Route: 048
  11. AMPYRA [Concomitant]
     Active Substance: DALFAMPRIDINE
     Indication: Muscular weakness
     Dosage: STARTED LAST FALL 2020
     Route: 048
     Dates: start: 2020
  12. AMPYRA [Concomitant]
     Active Substance: DALFAMPRIDINE
     Indication: Secondary progressive multiple sclerosis
  13. CRESTOR [Concomitant]
     Active Substance: ROSUVASTATIN CALCIUM
     Indication: Blood cholesterol increased
     Dosage: STARTED AT LEAST 7 TO 8 YEARS AGO OR MORE
     Route: 048
  14. PROVIGIL [Concomitant]
     Active Substance: MODAFINIL
     Indication: Somnolence
     Route: 048
     Dates: start: 202005
  15. IBUPROFEN [Concomitant]
     Active Substance: IBUPROFEN
     Indication: Rheumatoid arthritis
     Route: 048
     Dates: start: 202012
  16. CLARITIN [Concomitant]
     Active Substance: LORATADINE
     Indication: Hypersensitivity
     Dosage: STARTED ABOUT 20 YEARS AGO TAKES AS NEEDED
     Route: 048
  17. BIOTIN [Concomitant]
     Active Substance: BIOTIN
     Indication: Nail disorder
     Dosage: STARTED 5 TO 7 YEARS AGO TAKES AT NIGHT
  18. VITAMIN D3 [Concomitant]
     Active Substance: CHOLECALCIFEROL
     Indication: Vitamin D decreased
     Dosage: STARTED ABOUT 15 YEARS AGO
     Route: 048
  19. COENZYME Q10 [Concomitant]
     Active Substance: DIETARY SUPPLEMENT\UBIDECARENONE
     Indication: Muscle spasms
     Dosage: STARTED ABOUT 1 YEAR AGO
     Route: 048
  20. PREMARIN VAGINAL [Concomitant]
     Active Substance: ESTROGENS, CONJUGATED
     Indication: Atrophic vulvovaginitis
     Dosage: STARTED 1.5 YEARS AGO
  21. BETAMETHASONE\CLOTRIMAZOLE [Concomitant]
     Active Substance: BETAMETHASONE\CLOTRIMAZOLE
     Indication: Fungal infection
     Dosage: STARTED 1.5 YEARS AGO
     Route: 061
  22. ALBUTEROL [Concomitant]
     Active Substance: ALBUTEROL
     Indication: Asthma
     Dosage: STARTED 5 TO 6 YEARS AGO AS NEBULIZER AS NEEDED
     Route: 055
  23. AZMACORT [Concomitant]
     Active Substance: TRIAMCINOLONE ACETONIDE
     Indication: Asthma
     Dosage: STARTED YEARS AGO 2 PUFFS UP TO TWICE/DAY AS NEEDED
     Route: 055
  24. LYRICA [Concomitant]
     Active Substance: PREGABALIN
  25. BENADRYL [Concomitant]
     Active Substance: DIPHENHYDRAMINE HYDROCHLORIDE
     Route: 042
  26. BENADRYL [Concomitant]
     Active Substance: DIPHENHYDRAMINE HYDROCHLORIDE
     Route: 042
     Dates: start: 202108, end: 202108
  27. SOLU-MEDROL [Concomitant]
     Active Substance: METHYLPREDNISOLONE SODIUM SUCCINATE
     Route: 042
     Dates: start: 202202
  28. PLAQUENIL [Concomitant]
     Active Substance: HYDROXYCHLOROQUINE SULFATE
     Indication: Rheumatoid arthritis
     Dates: start: 2022
  29. POTASSIUM [Concomitant]
     Active Substance: POTASSIUM

REACTIONS (21)
  - Mobility decreased [Not Recovered/Not Resolved]
  - Pain [Not Recovered/Not Resolved]
  - Swelling [Not Recovered/Not Resolved]
  - Musculoskeletal stiffness [Not Recovered/Not Resolved]
  - Neuralgia [Not Recovered/Not Resolved]
  - Weight increased [Not Recovered/Not Resolved]
  - Vitamin B12 decreased [Recovered/Resolved]
  - Muscle spasms [Not Recovered/Not Resolved]
  - Eustachian tube dysfunction [Not Recovered/Not Resolved]
  - Off label use [Unknown]
  - Multiple sclerosis [Not Recovered/Not Resolved]
  - Urinary incontinence [Not Recovered/Not Resolved]
  - Gastrooesophageal reflux disease [Not Recovered/Not Resolved]
  - Iron deficiency anaemia [Not Recovered/Not Resolved]
  - Muscular weakness [Not Recovered/Not Resolved]
  - Transient ischaemic attack [Recovered/Resolved]
  - Cerebrovascular accident [Recovered/Resolved]
  - Somnolence [Recovered/Resolved]
  - COVID-19 [Recovered/Resolved]
  - Fatigue [Not Recovered/Not Resolved]
  - Drug ineffective [Unknown]

NARRATIVE: CASE EVENT DATE: 20210101
